FAERS Safety Report 11068714 (Version 1)
Quarter: 2015Q2

REPORT INFORMATION
  Report Type: Spontaneous
  Country: JP (occurrence: JP)
  Receive Date: 20150427
  Receipt Date: 20150427
  Transmission Date: 20150821
  Serious: Yes (Other)
  Sender: FDA-Public Use
  Company Number: JP-SA-2015SA037756

PATIENT
  Sex: Female

DRUGS (4)
  1. MABCAMPATH [Suspect]
     Active Substance: ALEMTUZUMAB
     Indication: T-CELL PROLYMPHOCYTIC LEUKAEMIA
     Route: 041
     Dates: start: 20150325, end: 20150325
  2. MABCAMPATH [Suspect]
     Active Substance: ALEMTUZUMAB
     Indication: T-CELL PROLYMPHOCYTIC LEUKAEMIA
     Route: 041
     Dates: start: 20150326, end: 20150326
  3. MABCAMPATH [Suspect]
     Active Substance: ALEMTUZUMAB
     Indication: T-CELL PROLYMPHOCYTIC LEUKAEMIA
     Route: 041
     Dates: start: 20150323, end: 20150324
  4. MABCAMPATH [Suspect]
     Active Substance: ALEMTUZUMAB
     Indication: T-CELL PROLYMPHOCYTIC LEUKAEMIA
     Route: 041
     Dates: start: 20150330, end: 201504

REACTIONS (11)
  - Cough [Recovering/Resolving]
  - Posterior reversible encephalopathy syndrome [Unknown]
  - Blood pressure increased [Unknown]
  - Visual impairment [Unknown]
  - Palpitations [Recovered/Resolved]
  - Nausea [Unknown]
  - Back pain [Recovered/Resolved]
  - Pyrexia [Recovering/Resolving]
  - Urticaria [Recovering/Resolving]
  - Vomiting [Unknown]
  - Bone pain [Recovering/Resolving]

NARRATIVE: CASE EVENT DATE: 20150323
